FAERS Safety Report 18115966 (Version 1)
Quarter: 2020Q3

REPORT INFORMATION
  Report Type: Spontaneous
  Country: US (occurrence: US)
  Receive Date: 20200806
  Receipt Date: 20200806
  Transmission Date: 20201103
  Serious: No
  Sender: FDA-Public Use
  Company Number: US-ASTRAZENECA-2020SE96645

PATIENT
  Sex: Male

DRUGS (1)
  1. QUETIAPINE FUMARATE. [Suspect]
     Active Substance: QUETIAPINE FUMARATE
     Dosage: UNKNOWN UNKNOWN
     Route: 048

REACTIONS (5)
  - Somnolence [Unknown]
  - Asthenia [Unknown]
  - Balance disorder [Unknown]
  - Constipation [Unknown]
  - Off label use [Unknown]
